FAERS Safety Report 16992802 (Version 1)
Quarter: 2019Q4

REPORT INFORMATION
  Report Type: Spontaneous
  Country: US (occurrence: US)
  Receive Date: 20191104
  Receipt Date: 20191104
  Transmission Date: 20200122
  Serious: No
  Sender: FDA-Public Use
  Company Number: None

PATIENT
  Age: 12 Week
  Sex: Female
  Weight: 6.3 kg

DRUGS (1)
  1. RANITIDINE 75MG/5ML SYP SIL [Suspect]
     Active Substance: RANITIDINE
     Indication: GASTROOESOPHAGEAL REFLUX DISEASE
     Dosage: ?          QUANTITY:.6 ML;OTHER FREQUENCY:2 TO 3 TIMES PER D;?
     Route: 048
     Dates: start: 20191010, end: 20191013

REACTIONS (5)
  - Gastrooesophageal reflux disease [None]
  - Condition aggravated [None]
  - Infantile spitting up [None]
  - Screaming [None]
  - Feeling abnormal [None]

NARRATIVE: CASE EVENT DATE: 20191010
